FAERS Safety Report 5702165-8 (Version None)
Quarter: 2008Q2

REPORT INFORMATION
  Report Type: 
  Country: None (occurrence: None)
  Receive Date: 20080411
  Receipt Date: 20080326
  Transmission Date: 20081010
  Serious: Yes (Other)
  Sender: FDA-Public Use
  Company Number: PHBS2008ZA03619

PATIENT
  Age: 21 Year
  Sex: Male
  Weight: 100 kg

DRUGS (2)
  1. RITALIN [Suspect]
     Indication: ATTENTION DEFICIT/HYPERACTIVITY DISORDER
     Route: 048
  2. RITALIN [Suspect]
     Dosage: 100 MG
     Route: 048

REACTIONS (8)
  - DEPRESSION [None]
  - EMOTIONAL DISORDER [None]
  - GAMBLING [None]
  - HAIR DISORDER [None]
  - IMPULSIVE BEHAVIOUR [None]
  - MEDICATION ERROR [None]
  - STRESS [None]
  - SUICIDAL BEHAVIOUR [None]
